FAERS Safety Report 13977232 (Version 1)
Quarter: 2017Q3

REPORT INFORMATION
  Report Type: Spontaneous
  Country: US (occurrence: US)
  Receive Date: 20170915
  Receipt Date: 20170915
  Transmission Date: 20171128
  Serious: No
  Sender: FDA-Public Use
  Company Number: US-ROCHE-714813

PATIENT

DRUGS (1)
  1. HERCEPTIN [Suspect]
     Active Substance: TRASTUZUMAB
     Indication: PRODUCT USED FOR UNKNOWN INDICATION
     Dosage: REPORTED AS ^JUST FINISHED 2 WEEKS AGO^.
     Route: 065

REACTIONS (8)
  - Fatigue [Unknown]
  - Skin fissures [Unknown]
  - Diarrhoea [Unknown]
  - Alopecia [Unknown]
  - Pallor [Unknown]
  - Nail disorder [Unknown]
  - Impaired healing [Unknown]
  - Rhinorrhoea [Unknown]
